FAERS Safety Report 6781848-5 (Version None)
Quarter: 2010Q2

REPORT INFORMATION
  Report Type: 
  Country: None (occurrence: None)
  Receive Date: 20100621
  Receipt Date: 20100611
  Transmission Date: 20101027
  Serious: Yes (Hospitalization)
  Sender: FDA-Public Use
  Company Number: PHHO2010US07870

PATIENT
  Sex: Male

DRUGS (11)
  1. AFINITOR [Suspect]
     Indication: WALDENSTROM'S MACROGLOBULINAEMIA
     Dosage: 5 MG, QD
     Route: 048
     Dates: start: 20100423
  2. RITUXIMAB COMP_RIT+ [Suspect]
     Indication: WALDENSTROM'S MACROGLOBULINAEMIA
     Dosage: 375 MG/M^2
     Route: 042
     Dates: start: 20100423
  3. BORTEZOMIB COMPARATOR COMP-BOR+ [Suspect]
     Indication: WALDENSTROM'S MACROGLOBULINAEMIA
  4. ALLOPURINOL [Concomitant]
  5. OMEGA-3 FATTY ACIDS [Concomitant]
  6. GLUCOSAMINE [Concomitant]
  7. ATORVASTATIN [Concomitant]
  8. GABAPENTIN [Concomitant]
  9. CIPROFLOXACIN [Concomitant]
  10. COLACE [Concomitant]
  11. ZOCOR [Concomitant]

REACTIONS (8)
  - ANAEMIA [None]
  - CHILLS [None]
  - NEUTROPENIA [None]
  - NIGHT SWEATS [None]
  - PANCYTOPENIA [None]
  - PYREXIA [None]
  - THROMBOCYTOPENIA [None]
  - WEIGHT DECREASED [None]
